FAERS Safety Report 15886896 (Version 2)
Quarter: 2019Q1

REPORT INFORMATION
  Report Type: Report from Study
  Country: TW (occurrence: TW)
  Receive Date: 20190130
  Receipt Date: 20190215
  Transmission Date: 20190417
  Serious: Yes (Hospitalization)
  Sender: FDA-Public Use
  Company Number: TW-INCYTE CORPORATION-2019IN000611

PATIENT

DRUGS (1)
  1. JAKAVI [Suspect]
     Active Substance: RUXOLITINIB
     Indication: MYELOFIBROSIS
     Dosage: 40 MG, UNK
     Route: 048
     Dates: start: 20180118

REACTIONS (15)
  - Gastrooesophageal reflux disease [Recovering/Resolving]
  - Abdominal pain lower [Recovering/Resolving]
  - Appendicolith [Unknown]
  - Dyspnoea [Recovered/Resolved]
  - Gamma-glutamyltransferase increased [Unknown]
  - Melaena [Recovering/Resolving]
  - Lymph node calcification [Unknown]
  - Flatulence [Unknown]
  - Impaired gastric emptying [Recovering/Resolving]
  - Diverticulitis [Recovered/Resolved]
  - Dizziness [Recovering/Resolving]
  - Abdominal pain upper [Recovering/Resolving]
  - Abdominal distension [Recovering/Resolving]
  - Vomiting [Recovering/Resolving]
  - Appendicitis [Unknown]

NARRATIVE: CASE EVENT DATE: 201901
